FAERS Safety Report 6527124-7 (Version None)
Quarter: 2010Q1

REPORT INFORMATION
  Report Type: 
  Country: None (occurrence: None)
  Receive Date: 20100105
  Receipt Date: 20091225
  Transmission Date: 20100710
  Serious: Yes (Other)
  Sender: FDA-Public Use
  Company Number: TR-ELI_LILLY_AND_COMPANY-TR200912005754

PATIENT
  Age: 33 Year
  Sex: Female

DRUGS (2)
  1. HUMULIN R [Suspect]
     Indication: GESTATIONAL DIABETES
  2. VITAMINS [Concomitant]
     Indication: VITAMIN SUPPLEMENTATION
     Dosage: UNK, 3/D

REACTIONS (3)
  - ABORTION THREATENED [None]
  - DRUG EXPOSURE DURING PREGNANCY [None]
  - HAEMORRHAGE [None]
